FAERS Safety Report 9433499 (Version 1)
Quarter: 2013Q3

REPORT INFORMATION
  Report Type: Spontaneous
  Country: US (occurrence: US)
  Receive Date: 20130731
  Receipt Date: 20130731
  Transmission Date: 20140515
  Serious: No
  Sender: FDA-Public Use
  Company Number: US-PFIZER INC-2013219204

PATIENT
  Sex: Male

DRUGS (3)
  1. VIAGRA [Suspect]
     Indication: ERECTILE DYSFUNCTION
     Dosage: 100 MG, AS NEEDED
     Route: 048
     Dates: start: 201306
  2. METOPROLOL [Concomitant]
     Indication: HYPERTENSION
     Dosage: UNK, 1X/DAY
  3. AMLODIPINE [Concomitant]
     Indication: HYPERTENSION
     Dosage: UNK, 1X/DAY

REACTIONS (2)
  - Product expiration date issue [Unknown]
  - Drug ineffective [Unknown]
